FAERS Safety Report 15660813 (Version 1)
Quarter: 2018Q4

REPORT INFORMATION
  Report Type: Spontaneous
  Country: US (occurrence: US)
  Receive Date: 20181127
  Receipt Date: 20181127
  Transmission Date: 20190205
  Serious: No
  Sender: FDA-Public Use
  Company Number: US-TEVA-2017-US-827500

PATIENT
  Sex: Male

DRUGS (1)
  1. ALPRAZOLAM EXTENDED RELEASE [Suspect]
     Active Substance: ALPRAZOLAM
     Dosage: EXTENDED RELEASE
     Route: 065

REACTIONS (2)
  - Product substitution issue [Unknown]
  - Drug effect decreased [Unknown]
